FAERS Safety Report 10017094 (Version 1)
Quarter: 2014Q1

REPORT INFORMATION
  Report Type: Spontaneous
  Country: US (occurrence: US)
  Receive Date: 20140318
  Receipt Date: 20140318
  Transmission Date: 20141002
  Serious: Yes (Other)
  Sender: FDA-Public Use
  Company Number: US-MERCK-1403USA006281

PATIENT
  Age: 26 Year
  Sex: Female

DRUGS (2)
  1. ZOLINZA [Suspect]
     Indication: HODGKIN^S DISEASE
     Route: 048
  2. RAPAMUNE [Suspect]
     Indication: HODGKIN^S DISEASE

REACTIONS (1)
  - Thrombocytopenia [Unknown]
